FAERS Safety Report 14459597 (Version 1)
Quarter: 2018Q1

REPORT INFORMATION
  Report Type: Spontaneous
  Country: US (occurrence: US)
  Receive Date: 20180129
  Receipt Date: 20180129
  Transmission Date: 20180509
  Serious: Yes (Disabling)
  Sender: FDA-Public Use
  Company Number: None

PATIENT
  Age: 5 Year
  Sex: Male
  Weight: 31.5 kg

DRUGS (1)
  1. MONTELUKAST [Suspect]
     Active Substance: MONTELUKAST SODIUM
     Indication: MULTIPLE ALLERGIES
     Dosage: QUANTITY:1 TABLET(S); AT BEDTIME?
     Route: 048

REACTIONS (7)
  - Abnormal behaviour [None]
  - Weight increased [None]
  - Crying [None]
  - Sleep disorder [None]
  - Aggression [None]
  - Nightmare [None]
  - Increased appetite [None]

NARRATIVE: CASE EVENT DATE: 20161001
